FAERS Safety Report 7303780-0 (Version None)
Quarter: 2011Q1

REPORT INFORMATION
  Report Type: 
  Country: None (occurrence: None)
  Receive Date: 20110221
  Receipt Date: 20110214
  Transmission Date: 20110831
  Serious: Yes (Hospitalization)
  Sender: FDA-Public Use
  Company Number: FR-BRISTOL-MYERS SQUIBB COMPANY-15465990

PATIENT
  Age: 60 Year
  Sex: Male
  Weight: 61 kg

DRUGS (5)
  1. FLUOROURACIL [Suspect]
     Indication: HEAD AND NECK CANCER
     Route: 042
     Dates: start: 20101213, end: 20101217
  2. DOMPERIDONE [Concomitant]
     Indication: NAUSEA
     Route: 048
  3. CETUXIMAB [Suspect]
     Indication: HEAD AND NECK CANCER
     Dosage: ALSO 1 IN 2 HR
     Route: 042
     Dates: start: 20101213, end: 20101213
  4. CODEINE PHOSPHATE AND ACETAMINOPHEN [Concomitant]
     Indication: PAIN
     Route: 048
  5. CISPLATIN [Suspect]
     Indication: HEAD AND NECK CANCER
     Route: 042
     Dates: start: 20101213, end: 20101213

REACTIONS (12)
  - HYPOTENSION [None]
  - VOMITING [None]
  - THROMBOCYTOPENIA [None]
  - FEBRILE NEUTROPENIA [None]
  - HYPOKALAEMIA [None]
  - TACHYCARDIA [None]
  - DIARRHOEA [None]
  - RENAL FAILURE [None]
  - ANAEMIA [None]
  - SEPSIS [None]
  - TROPONIN INCREASED [None]
  - HYPERTHERMIA [None]
